FAERS Safety Report 4478167-9 (Version None)
Quarter: 2004Q4

REPORT INFORMATION
  Report Type: 
  Country: None (occurrence: None)
  Receive Date: 20041019
  Receipt Date: 20041011
  Transmission Date: 20050328
  Serious: Yes (Death)
  Sender: FDA-Public Use
  Company Number: US-JNJFOC-20041003836

PATIENT
  Sex: Female

DRUGS (10)
  1. REMICADE [Suspect]
     Indication: RHEUMATOID ARTHRITIS
     Route: 042
  2. CELEBREX [Concomitant]
  3. PREDNISONE TAB [Concomitant]
  4. METHOTREXATE [Concomitant]
  5. SYNTHROID [Concomitant]
  6. PROZAC [Concomitant]
  7. EVISTA [Concomitant]
  8. OSCAL [Concomitant]
  9. FOLIC ACID [Concomitant]
  10. HUMIRA [Concomitant]

REACTIONS (1)
  - DEATH [None]
